FAERS Safety Report 21022347 (Version 2)
Quarter: 2022Q3

REPORT INFORMATION
  Report Type: Spontaneous
  Country: US (occurrence: US)
  Receive Date: 20220629
  Receipt Date: 20220830
  Transmission Date: 20221026
  Serious: No
  Sender: FDA-Public Use
  Company Number: US-PFIZER INC-202200903007

PATIENT
  Age: 66 Year
  Sex: Female
  Weight: 87.09 kg

DRUGS (2)
  1. XELJANZ [Suspect]
     Active Substance: TOFACITINIB CITRATE
     Indication: Rheumatoid arthritis
     Dosage: UNK
     Dates: end: 2022
  2. METHOTREXATE [Concomitant]
     Active Substance: METHOTREXATE
     Indication: Rheumatoid arthritis
     Dosage: UNK

REACTIONS (5)
  - Pain [Unknown]
  - Musculoskeletal stiffness [Unknown]
  - Sluggishness [Unknown]
  - Somnolence [Unknown]
  - Limb discomfort [Unknown]

NARRATIVE: CASE EVENT DATE: 20220101
